FAERS Safety Report 14306560 (Version 2)
Quarter: 2018Q1

REPORT INFORMATION
  Report Type: Report from Study
  Country: None (occurrence: US)
  Receive Date: 20171220
  Receipt Date: 20180206
  Transmission Date: 20180509
  Serious: Yes (Other)
  Sender: FDA-Public Use
  Company Number: US-ABBVIE-17K-163-2111724-00

PATIENT
  Age: 58 Year
  Sex: Female

DRUGS (10)
  1. METHOTREXATE. [Concomitant]
     Active Substance: METHOTREXATE
     Indication: PRODUCT USED FOR UNKNOWN INDICATION
  2. HUMIRA [Suspect]
     Active Substance: ADALIMUMAB
     Indication: PSORIASIS
     Route: 058
     Dates: end: 20170909
  3. HYDROCHLOROTH [Concomitant]
     Active Substance: HYDROCHLOROTHIAZIDE
     Indication: SWELLING
     Dosage: AS NEEDED
  4. HUMIRA [Suspect]
     Active Substance: ADALIMUMAB
     Route: 058
  5. METFORMIN [Concomitant]
     Active Substance: METFORMIN HYDROCHLORIDE
     Indication: BLOOD GLUCOSE
  6. CYMBALTA [Concomitant]
     Active Substance: DULOXETINE HYDROCHLORIDE
     Indication: DEPRESSION
  7. HUMIRA [Suspect]
     Active Substance: ADALIMUMAB
     Route: 058
  8. RAMIPRIL. [Concomitant]
     Active Substance: RAMIPRIL
     Indication: BLOOD PRESSURE MEASUREMENT
  9. LORCET [Concomitant]
     Active Substance: ACETAMINOPHEN\HYDROCODONE BITARTRATE
     Indication: PAIN
     Dosage: 5/325
  10. LIPITOR [Concomitant]
     Active Substance: ATORVASTATIN CALCIUM
     Indication: BLOOD CHOLESTEROL

REACTIONS (7)
  - Uterine prolapse [Unknown]
  - Blood glucose increased [Unknown]
  - Feeling abnormal [Unknown]
  - Psoriasis [Unknown]
  - Sinus congestion [Unknown]
  - Joint injection [Unknown]
  - Uterine cancer [Recovered/Resolved]

NARRATIVE: CASE EVENT DATE: 20171025
